FAERS Safety Report 6531017-9 (Version None)
Quarter: 2010Q1

REPORT INFORMATION
  Report Type: 
  Country: None (occurrence: None)
  Receive Date: 20100108
  Receipt Date: 20090911
  Transmission Date: 20100710
  Serious: No
  Sender: FDA-Public Use
  Company Number: A0806933A

PATIENT
  Age: 49 Year
  Sex: Female

DRUGS (2)
  1. LOVAZA [Suspect]
     Dosage: 1CAP TWICE PER DAY
     Route: 048
     Dates: start: 20090902
  2. HYDROCHLOROTHIAZIDE [Concomitant]

REACTIONS (1)
  - BACK PAIN [None]
